FAERS Safety Report 9589631 (Version 1)
Quarter: 2013Q4

REPORT INFORMATION
  Report Type: Spontaneous
  Country: US (occurrence: US)
  Receive Date: 20131003
  Receipt Date: 20131003
  Transmission Date: 20140711
  Serious: No
  Sender: FDA-Public Use
  Company Number: US-AMGEN-USASP2012071042

PATIENT
  Age: 64 Year
  Sex: Female
  Weight: 58.05 kg

DRUGS (7)
  1. ENBREL [Suspect]
     Indication: RHEUMATOID ARTHRITIS
     Dosage: 50 MG, QWK
     Route: 058
  2. KETOPROFEN [Concomitant]
     Dosage: 200 MG, UNK
  3. PLAQUENIL                          /00072602/ [Concomitant]
     Dosage: 200 MG, UNK
  4. METHOTREXATE [Concomitant]
     Dosage: 2.5 MG, UNK
  5. FOLIC ACID [Concomitant]
     Dosage: UNK
  6. MULTIVITAMINS, PLAIN [Concomitant]
     Dosage: UNK
  7. DETROL LA [Concomitant]
     Dosage: .5 MG, UNK

REACTIONS (5)
  - Onychoclasis [Unknown]
  - Haematochezia [Recovered/Resolved]
  - Adverse drug reaction [Recovering/Resolving]
  - Anaemia [Recovered/Resolved]
  - Onychomycosis [Unknown]
